FAERS Safety Report 7742176-4 (Version None)
Quarter: 2011Q3

REPORT INFORMATION
  Report Type: 
  Country: None (occurrence: None)
  Receive Date: 20110829
  Receipt Date: 20110816
  Transmission Date: 20111222
  Serious: No
  Sender: FDA-Public Use
  Company Number: 2010US005250

PATIENT
  Age: 68 Hour
  Sex: Male
  Weight: 68.5 kg

DRUGS (10)
  1. ALOXI [Suspect]
     Dosage: 0.25 MG, SINGLE, INTRAVENOUS
     Route: 042
     Dates: start: 20080515, end: 20080515
  2. AXITINIB [Suspect]
     Indication: COLORECTAL CANCER
     Dosage: 5 MG, BID, ORL
     Route: 048
     Dates: start: 20080515
  3. DEXAMETHASONE [Concomitant]
  4. NORCO [Suspect]
     Indication: ABDOMINAL PAIN
     Dosage: 7.5/350 MG, ORAL
     Route: 048
     Dates: start: 20080505
  5. LASIX [Suspect]
     Indication: OEDEMA PERIPHERAL
     Dosage: UNK, ORAL
     Route: 048
     Dates: start: 20080501, end: 20080614
  6. FLUOROURACIL [Suspect]
     Indication: COLORECTAL CANCER
     Dosage: 4300 MG, UNK, INFUSION
     Dates: start: 20080515, end: 20080515
  7. OXALIPLATIN [Suspect]
     Indication: COLORECTAL CANCER
     Dosage: 150 MG, UNK, INTRAVENOUS
     Route: 042
     Dates: start: 20080515, end: 20080515
  8. LEUCOVORIN (FOLINIC ACID) [Suspect]
     Indication: COLORECTAL CANCER
     Dosage: 720 MG, UNK, INTRAVENOUS
     Route: 042
     Dates: start: 20080515, end: 20080515
  9. FLUOROURACIL [Suspect]
     Indication: COLORECTAL CANCER
     Dosage: 720 MG, UNK, IV BOLUS
     Route: 040
     Dates: start: 20080515, end: 20080515
  10. AVASTIN [Suspect]
     Indication: COLORECTAL CANCER
     Dosage: 2 MG/KG, Q2WK, INTRAVENOUS
     Route: 042
     Dates: start: 20080515

REACTIONS (6)
  - ABDOMINAL PAIN [None]
  - NO ADVERSE EVENT [None]
  - DEHYDRATION [None]
  - CONSTIPATION [None]
  - OEDEMA PERIPHERAL [None]
  - SCROTAL OEDEMA [None]
